FAERS Safety Report 12909971 (Version 1)
Quarter: 2016Q4

REPORT INFORMATION
  Report Type: Report from Study
  Country: IT (occurrence: IT)
  Receive Date: 20161104
  Receipt Date: 20161104
  Transmission Date: 20170207
  Serious: Yes (Other)
  Sender: FDA-Public Use
  Company Number: IT-ROCHE-1848997

PATIENT

DRUGS (3)
  1. CAPECITABINE. [Suspect]
     Active Substance: CAPECITABINE
     Indication: COLORECTAL CANCER
     Dosage: FILM-COATED TABLETS IN TWO DOSE STRENGTHS (150 MG AND 500 MG) ?CONTINUOUSLY FOR 14 DAYS IN DOSES RAN
     Route: 048
  2. OXALIPLATIN. [Suspect]
     Active Substance: OXALIPLATIN
     Indication: COLORECTAL CANCER
     Dosage: TWO-HOUR INFUSION ON DAY 1 USING DOSE, RANGES FROM 100 TO 130 MG/M2 REPEATED EVERY THREE WEEKS
     Route: 065
  3. ONDANSETRON [Concomitant]
     Active Substance: ONDANSETRON
     Indication: PROPHYLAXIS
     Route: 042

REACTIONS (5)
  - Stomatitis [Unknown]
  - Vomiting [Unknown]
  - Diarrhoea [Unknown]
  - Neutropenia [Unknown]
  - Neurotoxicity [Unknown]
